FAERS Safety Report 6274802-3 (Version None)
Quarter: 2009Q3

REPORT INFORMATION
  Report Type: 
  Country: None (occurrence: None)
  Receive Date: 20090721
  Receipt Date: 20090713
  Transmission Date: 20100115
  Serious: Yes (Hospitalization, Other)
  Sender: FDA-Public Use
  Company Number: BR-ELI_LILLY_AND_COMPANY-BR200906006580

PATIENT
  Sex: Male
  Weight: 147 kg

DRUGS (4)
  1. BYETTA [Suspect]
     Indication: TYPE 2 DIABETES MELLITUS
     Dosage: 5 UG, UNKNOWN
     Route: 058
     Dates: start: 20090624
  2. ACTUS [Concomitant]
     Dosage: 45 MG, UNKNOWN
     Route: 065
  3. GLIFAGE [Concomitant]
     Dosage: UNK, UNKNOWN
     Route: 065
  4. SERTRALINA [Concomitant]
     Dosage: UNK, UNKNOWN
     Route: 065

REACTIONS (6)
  - DIABETES MELLITUS INADEQUATE CONTROL [None]
  - NAUSEA [None]
  - OROPHARYNGEAL PAIN [None]
  - PAIN [None]
  - PNEUMONIA [None]
  - VOMITING [None]
